FAERS Safety Report 5245128-1 (Version None)
Quarter: 2007Q1

REPORT INFORMATION
  Report Type: 
  Country: None (occurrence: None)
  Receive Date: 20070223
  Receipt Date: 20070216
  Transmission Date: 20070707
  Serious: Yes (Death, Hospitalization)
  Sender: FDA-Public Use
  Company Number: PHHO2007VE03203

PATIENT
  Age: 54 Year
  Sex: Male

DRUGS (2)
  1. ZELMAC / HTF 919A [Suspect]
     Indication: IRRITABLE BOWEL SYNDROME
     Dosage: 6 MG, TID
     Route: 048
     Dates: start: 20060801, end: 20060901
  2. ANTIHYPERTENSIVES [Concomitant]

REACTIONS (5)
  - CARDIAC ARREST [None]
  - GENERAL PHYSICAL HEALTH DETERIORATION [None]
  - HEPATIC CYST [None]
  - PLATELET COUNT DECREASED [None]
  - YELLOW SKIN [None]
